FAERS Safety Report 9689422 (Version 1)
Quarter: 2013Q4

REPORT INFORMATION
  Report Type: Report from Study
  Country: US (occurrence: US)
  Receive Date: 20131114
  Receipt Date: 20131114
  Transmission Date: 20140711
  Serious: Yes (Other)
  Sender: FDA-Public Use
  Company Number: GXBR2013US001959

PATIENT
  Sex: Female

DRUGS (2)
  1. RIBAVIRIN CAPSULES [Suspect]
     Dosage: FETAL DRUG EXPOSURE VIA FATHER
  2. PEGINTERFERON ALFA [Suspect]
     Dosage: FETAL DRUG EXPOSURE VIA FATHER

REACTIONS (2)
  - Abortion spontaneous [Unknown]
  - Exposure via father [Unknown]
